FAERS Safety Report 4363955-X (Version None)
Quarter: 2004Q2

REPORT INFORMATION
  Report Type: 
  Country: None (occurrence: None)
  Receive Date: 20040525
  Receipt Date: 20040521
  Transmission Date: 20050107
  Serious: Yes (Death, Life-Threatening)
  Sender: FDA-Public Use
  Company Number: US-BRISTOL-MYERS SQUIBB COMPANY-12592283

PATIENT
  Age: 64 Year
  Sex: Female

DRUGS (6)
  1. CYCLOPHOSPHAMIDE [Suspect]
     Indication: NON-HODGKIN'S LYMPHOMA
     Dosage: 1ST DOSE IN RELAPSE: 05-MAY-1997 1ST DOSE GIVEN ON 27-DEC-1995 IN STUDY
     Dates: start: 19980728, end: 19980728
  2. DOXORUBICIN HCL [Suspect]
     Indication: NON-HODGKIN'S LYMPHOMA
     Dosage: 1ST DOSE IN RELAPSE: 05-MAY-1997 1ST DOSE GIVEN ON 27-DEC-1995 IN STUDY
     Dates: start: 19980728, end: 19980728
  3. ETOPOSIDE [Suspect]
     Indication: NON-HODGKIN'S LYMPHOMA
     Dates: start: 19951227, end: 19960413
  4. NEUPOGEN [Suspect]
     Indication: NON-HODGKIN'S LYMPHOMA
     Dosage: (STUDY DRUG)
     Dates: start: 19960101, end: 19960424
  5. VINCRISTINE SULFATE [Concomitant]
     Indication: NON-HODGKIN'S LYMPHOMA
     Dates: start: 19970505, end: 19980728
  6. PREDNISONE [Concomitant]
     Indication: NON-HODGKIN'S LYMPHOMA
     Dates: start: 19970505, end: 19980728

REACTIONS (3)
  - ACUTE MYELOID LEUKAEMIA [None]
  - LEUKAEMIA [None]
  - SEPSIS [None]
